FAERS Safety Report 9995717 (Version 1)
Quarter: 2014Q1

REPORT INFORMATION
  Report Type: Spontaneous
  Country: US (occurrence: None)
  Receive Date: 20140310
  Receipt Date: 20140310
  Transmission Date: 20141002
  Serious: Yes (Other)
  Sender: FDA-Public Use
  Company Number: None

PATIENT
  Age: 34 Year
  Sex: Female
  Weight: 97.07 kg

DRUGS (2)
  1. LEVOTHYROXINE 0.075 MG (75 MCG) TABS [Suspect]
     Route: 048
     Dates: start: 20140201, end: 20140306
  2. ASPIRIN [Concomitant]

REACTIONS (3)
  - Alopecia [None]
  - Urticaria [None]
  - Product substitution issue [None]
